FAERS Safety Report 6319466-5 (Version None)
Quarter: 2009Q3

REPORT INFORMATION
  Report Type: 
  Country: None (occurrence: None)
  Receive Date: 20090822
  Receipt Date: 20080909
  Transmission Date: 20100115
  Serious: No
  Sender: FDA-Public Use
  Company Number: US-ABBOTT-08P-163-0475227-00

PATIENT
  Sex: Male
  Weight: 74.91 kg

DRUGS (3)
  1. NIASPAN [Suspect]
     Indication: BLOOD CHOLESTEROL
     Route: 048
     Dates: start: 20080807
  2. ASPIRIN [Concomitant]
     Indication: PROPHYLAXIS
     Dosage: ONE 30MIN PRIOR TO NIASPAN
     Route: 048
  3. DIPHENHYDRAMINE HYDROCHLORIDE [Concomitant]
     Indication: SEASONAL ALLERGY
     Dosage: EVERY NIGHT FOR HAY FEVER

REACTIONS (2)
  - FLUSHING [None]
  - PRURITUS [None]
